FAERS Safety Report 6747951-0 (Version None)
Quarter: 2010Q2

REPORT INFORMATION
  Report Type: 
  Country: None (occurrence: None)
  Receive Date: 20100528
  Receipt Date: 20100521
  Transmission Date: 20101027
  Serious: Yes (Hospitalization)
  Sender: FDA-Public Use
  Company Number: US-MERCK-1005USA03863

PATIENT
  Age: 47 Year
  Sex: Male

DRUGS (1)
  1. SINGULAIR [Suspect]
     Indication: RHINITIS
     Route: 048

REACTIONS (5)
  - HALLUCINATION [None]
  - HALLUCINATION, AUDITORY [None]
  - IMPULSE-CONTROL DISORDER [None]
  - PARANOIA [None]
  - SUICIDAL IDEATION [None]
